FAERS Safety Report 25876871 (Version 2)
Quarter: 2025Q4

REPORT INFORMATION
  Report Type: Spontaneous
  Country: US (occurrence: US)
  Receive Date: 20251003
  Receipt Date: 20251030
  Transmission Date: 20260117
  Serious: No
  Sender: BRISTOL-MYERS SQUIBB COMPANY
  Company Number: US-BRISTOL-MYERS SQUIBB COMPANY-2025-134967

PATIENT
  Age: 75 Year
  Sex: Female

DRUGS (1)
  1. LENALIDOMIDE [Suspect]
     Active Substance: LENALIDOMIDE
     Indication: Chronic myelomonocytic leukaemia
     Dosage: TAKE 1 CAPSULE BY MOUTH IN THE MORNING FOR 21 DAYS, ON DAYS 1-21 THEN 1 WEEK REST WITH NO PILLS
     Route: 048

REACTIONS (1)
  - Off label use [Unknown]
